FAERS Safety Report 4825768-1 (Version None)
Quarter: 2005Q4

REPORT INFORMATION
  Report Type: 
  Country: None (occurrence: None)
  Receive Date: 20051109
  Receipt Date: 20051027
  Transmission Date: 20060501
  Serious: Yes (Hospitalization, Other)
  Sender: FDA-Public Use
  Company Number: 2005BI015747

PATIENT
  Age: 35 Year
  Sex: Female

DRUGS (7)
  1. AVONEX [Suspect]
     Indication: MULTIPLE SCLEROSIS
     Dosage: 30 UG; QW; IM
     Route: 030
     Dates: start: 20020802
  2. AVONEX [Suspect]
     Indication: MULTIPLE SCLEROSIS
     Dosage: 30 UG; QW; IM
     Route: 030
  3. EFFEXOR [Concomitant]
  4. METHOTREXATE [Concomitant]
  5. LOESTRIN 1.5/30 [Concomitant]
  6. PROVIGIL [Concomitant]
  7. VICODIN [Concomitant]

REACTIONS (2)
  - CONVULSION [None]
  - PETIT MAL EPILEPSY [None]
